FAERS Safety Report 4878302-4 (Version None)
Quarter: 2006Q1

REPORT INFORMATION
  Report Type: 
  Country: None (occurrence: None)
  Receive Date: 20060111
  Receipt Date: 20051004
  Transmission Date: 20060701
  Serious: Yes (Hospitalization)
  Sender: FDA-Public Use
  Company Number: US-MERCK-0510USA02600

PATIENT
  Age: 77 Year
  Sex: Female
  Weight: 73 kg

DRUGS (2)
  1. VIOXX [Suspect]
     Indication: ARTHRITIS
     Route: 048
     Dates: start: 20010101, end: 20020418
  2. NEURONTIN [Concomitant]
     Route: 065

REACTIONS (17)
  - ANGIOPATHY [None]
  - ATRIOVENTRICULAR BLOCK FIRST DEGREE [None]
  - BLOOD GLUCOSE INCREASED [None]
  - CEREBRAL HAEMANGIOMA [None]
  - CEREBRAL INFARCTION [None]
  - FACIAL PALSY [None]
  - HAEMANGIOMA [None]
  - HYPERTENSION [None]
  - HYPOKINESIA [None]
  - ISCHAEMIC STROKE [None]
  - MICROANGIOPATHY [None]
  - MUSCLE SPASMS [None]
  - NEUROPATHY PERIPHERAL [None]
  - NIGHT SWEATS [None]
  - RENAL FAILURE CHRONIC [None]
  - THYROID DISORDER [None]
  - VERTIGO [None]
